FAERS Safety Report 6340738-2 (Version None)
Quarter: 2009Q3

REPORT INFORMATION
  Report Type: 
  Country: None (occurrence: None)
  Receive Date: 20090904
  Receipt Date: 20090831
  Transmission Date: 20100115
  Serious: Yes (Hospitalization)
  Sender: FDA-Public Use
  Company Number: FR-BRISTOL-MYERS SQUIBB COMPANY-14763072

PATIENT
  Age: 82 Year
  Sex: Female

DRUGS (6)
  1. COAPROVEL FORTE TABS 300 MG/12.5 MG [Suspect]
     Dosage: 1 DF- 300MG/12.5 MG
     Dates: end: 20090315
  2. ACTOS [Suspect]
     Dates: end: 20090315
  3. DAONIL [Suspect]
     Dates: end: 20090315
  4. DIASTABOL [Suspect]
     Dates: end: 20090315
  5. NICARDIPINE HCL [Concomitant]
  6. KARDEGIC [Concomitant]

REACTIONS (2)
  - HYPOGLYCAEMIA [None]
  - VOMITING [None]
